FAERS Safety Report 8377179-2 (Version None)
Quarter: 2012Q1

REPORT INFORMATION
  Report Type: 
  Country: None (occurrence: None)
  Receive Date: 20120323
  Receipt Date: 20110805
  Transmission Date: 20120608
  Serious: Yes (Hospitalization)
  Sender: FDA-Public Use
  Company Number: 163-21880-11032996

PATIENT
  Age: 57 Year
  Sex: Female
  Weight: 57.3 kg

DRUGS (3)
  1. ANTIBIOTIC (ANTIBIOTICS) [Concomitant]
  2. REVLIMID [Suspect]
     Indication: MULTIPLE MYELOMA
     Dosage: 25 MG, DAILY FOR 21 OUT OF 28 DAYS, PO, 25 MG DAILY FOR 21 OUT 28 DAYS, PO
     Route: 048
  3. REVLIMID [Suspect]
     Indication: MULTIPLE MYELOMA
     Dosage: 25 MG, DAILY FOR 21 OUT OF 28 DAYS, PO, 25 MG DAILY FOR 21 OUT 28 DAYS, PO
     Route: 048
     Dates: start: 20091106, end: 20110521

REACTIONS (2)
  - CLOSTRIDIUM DIFFICILE COLITIS [None]
  - SINUSITIS [None]
